FAERS Safety Report 17830744 (Version 1)
Quarter: 2020Q2

REPORT INFORMATION
  Report Type: Spontaneous
  Country: GB (occurrence: GB)
  Receive Date: 20200527
  Receipt Date: 20200527
  Transmission Date: 20200714
  Serious: Yes (Other)
  Sender: FDA-Public Use
  Company Number: GB-PFIZER INC-2020206168

PATIENT
  Age: 40 Year
  Sex: Female
  Weight: 67.58 kg

DRUGS (1)
  1. CABERGOLINE. [Suspect]
     Active Substance: CABERGOLINE
     Dosage: 250 UG
     Route: 048
     Dates: start: 20200501

REACTIONS (6)
  - Erythema [Not Recovered/Not Resolved]
  - Palpitations [Recovered/Resolved]
  - Headache [Not Recovered/Not Resolved]
  - Hypersomnia [Not Recovered/Not Resolved]
  - Dizziness [Not Recovered/Not Resolved]
  - Vision blurred [Not Recovered/Not Resolved]

NARRATIVE: CASE EVENT DATE: 20200501
